FAERS Safety Report 12417999 (Version 3)
Quarter: 2016Q2

REPORT INFORMATION
  Report Type: Spontaneous
  Country: FR (occurrence: FR)
  Receive Date: 20160531
  Receipt Date: 20160610
  Transmission Date: 20160815
  Serious: Yes (Hospitalization, Other)
  Sender: FDA-Public Use
  Company Number: FR-009507513-1605FRA013689

PATIENT
  Age: 72 Year
  Sex: Female

DRUGS (5)
  1. PACLITAXEL. [Suspect]
     Active Substance: PACLITAXEL
     Dosage: UNK UNK, CYCLICAL
     Route: 041
     Dates: start: 20151218, end: 20151218
  2. DOMPERIDONE [Suspect]
     Active Substance: DOMPERIDONE
     Dosage: UNK
     Route: 048
     Dates: start: 20151214, end: 20151222
  3. EMEND [Suspect]
     Active Substance: APREPITANT
     Dosage: UNK
     Route: 048
     Dates: start: 20151218, end: 20151220
  4. HERCEPTIN [Suspect]
     Active Substance: TRASTUZUMAB
     Dosage: UNK, CYCLICAL
     Route: 041
     Dates: start: 20151218, end: 20151220
  5. PERJETA [Suspect]
     Active Substance: PERTUZUMAB
     Dosage: UNK, CYCLICAL
     Route: 041
     Dates: start: 20151218, end: 20151218

REACTIONS (2)
  - Pancytopenia [Recovered/Resolved]
  - Petit mal epilepsy [Recovered/Resolved]

NARRATIVE: CASE EVENT DATE: 20151222
